FAERS Safety Report 15149819 (Version 1)
Quarter: 2018Q3

REPORT INFORMATION
  Report Type: Spontaneous
  Country: US (occurrence: US)
  Receive Date: 20180716
  Receipt Date: 20180716
  Transmission Date: 20181010
  Serious: No
  Sender: FDA-Public Use
  Company Number: US-VANDA PHARMACEUTICALS, INC-2018TASUS002276

PATIENT
  Sex: Female

DRUGS (1)
  1. HETLIOZ [Suspect]
     Active Substance: TASIMELTEON
     Indication: BLINDNESS
     Dosage: 20 MG, ONCE DAILY
     Route: 048
     Dates: start: 2016

REACTIONS (3)
  - Middle insomnia [Unknown]
  - Sleep apnoea syndrome [Unknown]
  - Intentional product use issue [Unknown]
